FAERS Safety Report 24625852 (Version 1)
Quarter: 2024Q4

REPORT INFORMATION
  Report Type: Spontaneous
  Country: US (occurrence: US)
  Receive Date: 20241115
  Receipt Date: 20241115
  Transmission Date: 20250115
  Serious: No
  Sender: ANI
  Company Number: US-ANIPHARMA-2024-US-055974

PATIENT
  Sex: Female
  Weight: 55.34 kg

DRUGS (5)
  1. CORTICOTROPIN [Suspect]
     Active Substance: CORTICOTROPIN
     Indication: Rheumatoid arthritis
     Dosage: 80 UNITS SUBCUTANEOUS THREE TIMES A WEEK
     Route: 058
     Dates: start: 20240216
  2. METHOTREXATE (METHOTREXATE SODIUM) [Concomitant]
     Active Substance: METHOTREXATE SODIUM
  3. OZEMPIC .25 OR 0.5 PEN INJCTR [Concomitant]
  4. NAPROXEN [Concomitant]
     Active Substance: NAPROXEN
  5. SYNVISC [Concomitant]
     Active Substance: HYLAN G-F 20

REACTIONS (1)
  - Arthralgia [Not Recovered/Not Resolved]
